FAERS Safety Report 9881135 (Version 2)
Quarter: 2014Q1

REPORT INFORMATION
  Report Type: Spontaneous
  Country: US (occurrence: US)
  Receive Date: 20140207
  Receipt Date: 20140307
  Transmission Date: 20141002
  Serious: Yes (Other)
  Sender: FDA-Public Use
  Company Number: US-FRI-1000053324

PATIENT
  Age: 38 Year
  Sex: Female

DRUGS (4)
  1. VIIBRYD [Suspect]
     Dosage: 10 MG
     Route: 048
     Dates: start: 20131129, end: 20131205
  2. VIIBRYD [Suspect]
     Dosage: 20 MG
     Route: 048
     Dates: start: 20131206, end: 20131212
  3. VIIBRYD [Suspect]
     Dosage: 40 MG
     Route: 048
     Dates: start: 20131213, end: 20140105
  4. KLONOPIN [Concomitant]
     Dosage: 1 MG

REACTIONS (14)
  - Suicidal ideation [Recovered/Resolved]
  - Abdominal discomfort [Recovered/Resolved]
  - Nausea [Recovered/Resolved]
  - Vomiting [Recovered/Resolved]
  - Abnormal dreams [Recovered/Resolved]
  - Thinking abnormal [Recovered/Resolved]
  - Anger [Recovered/Resolved]
  - Flatulence [Recovered/Resolved]
  - Memory impairment [Recovered/Resolved]
  - Acne [Recovered/Resolved]
  - Feeling abnormal [Recovered/Resolved]
  - Unevaluable event [Recovered/Resolved]
  - Decreased interest [Recovered/Resolved]
  - Pain [Recovered/Resolved]
